FAERS Safety Report 9707997 (Version 2)
Quarter: 2013Q4

REPORT INFORMATION
  Report Type: Report from Study
  Country: US (occurrence: US)
  Receive Date: 20131125
  Receipt Date: 20131204
  Transmission Date: 20140711
  Serious: Yes (Hospitalization)
  Sender: FDA-Public Use
  Company Number: US-CELGENEUS-163-21880-13113213

PATIENT
  Age: 83 Year
  Sex: Male
  Weight: 83.5 kg

DRUGS (23)
  1. REVLIMID [Suspect]
     Indication: PLASMA CELL MYELOMA
     Dosage: 10 MILLIGRAM
     Route: 048
     Dates: start: 20130823
  2. DEXAMETHASONE [Suspect]
     Indication: PLASMA CELL MYELOMA
     Dosage: 8 MILLIGRAM
     Route: 041
     Dates: start: 20130823
  3. LENADEX [Suspect]
     Indication: PLASMA CELL MYELOMA
     Dosage: 40 MILLIGRAM
     Route: 048
     Dates: start: 20130822
  4. ELOTUZUMAB [Suspect]
     Indication: PLASMA CELL MYELOMA
     Dosage: 772 MILLIGRAM
     Route: 041
     Dates: start: 20130823
  5. ACETAMINOPHEN [Concomitant]
     Indication: PRODUCT USED FOR UNKNOWN INDICATION
     Route: 065
     Dates: start: 20130814
  6. AMLODIPINE [Concomitant]
     Indication: PRODUCT USED FOR UNKNOWN INDICATION
     Route: 065
     Dates: end: 20130925
  7. BICITRA [Concomitant]
     Indication: PRODUCT USED FOR UNKNOWN INDICATION
     Route: 065
  8. FOLTRIN [Concomitant]
     Indication: PRODUCT USED FOR UNKNOWN INDICATION
     Route: 065
  9. METOPROLOL [Concomitant]
     Indication: PRODUCT USED FOR UNKNOWN INDICATION
     Route: 065
  10. OXYCODONE [Concomitant]
     Indication: PRODUCT USED FOR UNKNOWN INDICATION
     Route: 065
  11. KCL [Concomitant]
     Indication: PRODUCT USED FOR UNKNOWN INDICATION
     Route: 065
  12. SITAGLIPTIN [Concomitant]
     Indication: PRODUCT USED FOR UNKNOWN INDICATION
     Route: 065
  13. COLACE [Concomitant]
     Indication: PRODUCT USED FOR UNKNOWN INDICATION
     Route: 065
     Dates: end: 20130925
  14. LANTUS SOLAR STAR [Concomitant]
     Indication: ADVERSE EVENT
     Dosage: 6 UNITS
     Route: 058
     Dates: start: 20130911, end: 20131003
  15. TUMS [Concomitant]
     Indication: ADVERSE EVENT
     Dosage: 4 TABLET
     Route: 048
     Dates: start: 20130909
  16. LORATAB [Concomitant]
     Indication: ADVERSE EVENT
     Route: 065
     Dates: start: 20131001
  17. FISH OIL [Concomitant]
     Indication: PRODUCT USED FOR UNKNOWN INDICATION
     Route: 065
     Dates: start: 20131001
  18. LANTUS [Concomitant]
     Indication: ADVERSE EVENT
     Dosage: 12 UNITS
     Route: 065
     Dates: start: 20131004, end: 20131030
  19. LANTUS [Concomitant]
     Dosage: 14 UNITS
     Route: 065
     Dates: start: 20131004
  20. LANTUS [Concomitant]
     Dosage: 16 UNITS
     Route: 065
     Dates: start: 20131030
  21. SILVADENE 1% [Concomitant]
     Indication: ADVERSE EVENT
     Route: 065
     Dates: start: 20131007, end: 20131025
  22. BABY ASPIRIN [Concomitant]
     Indication: PRODUCT USED FOR UNKNOWN INDICATION
     Route: 065
     Dates: start: 20131108
  23. DOCUSATE SODIUM\SENNOSIDES [Concomitant]
     Indication: ADVERSE EVENT
     Route: 065
     Dates: start: 20130923

REACTIONS (1)
  - Hyperglycaemia [Recovered/Resolved]
